FAERS Safety Report 9982081 (Version 1)
Quarter: 2014Q1

REPORT INFORMATION
  Report Type: Report from Study
  Country: US (occurrence: US)
  Receive Date: 20140307
  Receipt Date: 20140307
  Transmission Date: 20141002
  Serious: No
  Sender: FDA-Public Use
  Company Number: US-ABBVIE-13P-163-1178425-00

PATIENT
  Age: 70 Year
  Sex: Female

DRUGS (10)
  1. HUMIRA [Suspect]
     Indication: CROHN^S DISEASE
     Dates: start: 20131025
  2. ASACOL [Concomitant]
     Indication: CROHN^S DISEASE
  3. TOPROL [Concomitant]
     Indication: ATRIAL FIBRILLATION
  4. SYNTHROID [Concomitant]
     Indication: HYPOTHYROIDISM
  5. SIMVASTATIN [Concomitant]
     Indication: BLOOD CHOLESTEROL INCREASED
  6. PAXIL [Concomitant]
     Indication: ANXIETY
  7. PAXIL [Concomitant]
     Indication: PANIC ATTACK
  8. IRON [Concomitant]
     Indication: PRODUCT USED FOR UNKNOWN INDICATION
  9. PRILOSEC [Concomitant]
     Indication: GASTROOESOPHAGEAL REFLUX DISEASE
  10. COUMADIN [Concomitant]
     Indication: ATRIAL FIBRILLATION
     Dosage: DOSE CHANGES BASED ON PROTIME LEVELS

REACTIONS (1)
  - Fatigue [Not Recovered/Not Resolved]
